FAERS Safety Report 9773147 (Version 2)
Quarter: 2014Q1

REPORT INFORMATION
  Report Type: Spontaneous
  Country: FR (occurrence: FR)
  Receive Date: 20131219
  Receipt Date: 20140117
  Transmission Date: 20141002
  Serious: Yes (Hospitalization, Other)
  Sender: FDA-Public Use
  Company Number: FR-ASTRAZENECA-2013SE90710

PATIENT
  Age: 20544 Day
  Sex: Female

DRUGS (20)
  1. INEXIUM [Suspect]
     Route: 048
     Dates: start: 20131116, end: 20131118
  2. CRESTOR [Suspect]
     Route: 048
     Dates: start: 20131104
  3. VANCOMYCINE (NON AZ PRODUCT) [Suspect]
     Route: 042
     Dates: start: 20131106, end: 20131120
  4. DAFALGAN [Suspect]
     Route: 048
     Dates: start: 20131105
  5. GENTAMYCINE PANPHARMA [Suspect]
     Route: 042
     Dates: start: 20131106
  6. AUGMENTIN [Suspect]
     Route: 065
     Dates: start: 20131104
  7. BIONOLYTE [Suspect]
     Route: 065
     Dates: start: 20131104
  8. MOVICOL [Suspect]
     Route: 065
     Dates: start: 20131104
  9. KARDEGIC [Suspect]
     Route: 048
     Dates: start: 20131104
  10. LYRICA [Suspect]
     Route: 048
     Dates: start: 20131104
  11. PRIMPERAN [Suspect]
     Route: 048
     Dates: start: 20131105
  12. BECILAN [Suspect]
     Route: 048
     Dates: start: 20131108
  13. BEVITINE [Suspect]
     Route: 048
     Dates: start: 20131108
  14. CONTRAMAL [Suspect]
     Route: 048
     Dates: start: 20131110
  15. FUMAFER [Suspect]
     Route: 048
     Dates: start: 20131111
  16. VITASCORBOL [Suspect]
     Route: 048
     Dates: start: 20131111, end: 20131121
  17. TETANUS VACCINE [Suspect]
     Dosage: 1 DF
     Route: 058
     Dates: start: 20131112, end: 20131112
  18. GLUCOSE [Suspect]
     Route: 065
     Dates: start: 20131118
  19. IMOVANE [Suspect]
     Route: 048
     Dates: start: 20131118
  20. LASILIX [Concomitant]
     Dates: start: 20131117

REACTIONS (4)
  - Klebsiella infection [Unknown]
  - Pyelonephritis acute [Unknown]
  - Rash maculo-papular [Recovering/Resolving]
  - Pruritus [Recovering/Resolving]
